FAERS Safety Report 8381901-9 (Version None)
Quarter: 2012Q2

REPORT INFORMATION
  Report Type: 
  Country: None (occurrence: None)
  Receive Date: 20120523
  Receipt Date: 20120523
  Transmission Date: 20120825
  Serious: No
  Sender: FDA-Public Use
  Company Number: None

PATIENT
  Age: 76 Year
  Sex: Female
  Weight: 62.5964 kg

DRUGS (2)
  1. CYMBALTA [Suspect]
     Indication: ARTHRITIS
     Dosage: 1X DAY 3 1/2 MONTHS
  2. CYMBALTA [Suspect]
     Dosage: 1 X DAY

REACTIONS (13)
  - HEADACHE [None]
  - NAUSEA [None]
  - ABDOMINAL PAIN UPPER [None]
  - CONSTIPATION [None]
  - DECREASED APPETITE [None]
  - DRY MOUTH [None]
  - INCREASED TENDENCY TO BRUISE [None]
  - MOOD SWINGS [None]
  - SLEEP DISORDER [None]
  - WEIGHT DECREASED [None]
  - TREMOR [None]
  - HEART RATE INCREASED [None]
  - DYSURIA [None]
